FAERS Safety Report 4785976-5 (Version None)
Quarter: 2005Q3

REPORT INFORMATION
  Report Type: 
  Country: None (occurrence: None)
  Receive Date: 20050930
  Receipt Date: 20050919
  Transmission Date: 20060218
  Serious: Yes (Death)
  Sender: FDA-Public Use
  Company Number: GXKR2005GB01341

PATIENT
  Sex: Male

DRUGS (13)
  1. CIPROFLOXACIN [Suspect]
     Dosage: 250 MG, BID, UNK
     Route: 065
  2. FUROSEMIDE [Suspect]
     Dosage: 40 MG, QD, UNK
     Route: 065
  3. SPIRIVA [Suspect]
     Dosage: 18 UG, QD, RESPIRATORY
     Route: 055
  4. COMBIVENT [Suspect]
     Dosage: 2.5 ML, QID, RESPIRATORY
     Route: 055
  5. SERETIDE (FLUTICASONE PROPIONATE, SALMETEROL XINAFOATE) [Suspect]
     Dosage: 1 DOSE BID, RESPIRATORY
     Route: 055
  6. TRIMETHOPRIM [Suspect]
     Dosage: 200 MG, BID, UNK
     Route: 065
  7. SODIUM CHLORIDE 0.9% [Suspect]
     Dosage: 0.9% SOLUTION, UNK
     Route: 065
  8. PREDNISONE [Suspect]
     Dosage: 5 MG, 6QD,UNK
     Route: 065
  9. AMLODIPINE [Concomitant]
     Dosage: 5 MG, QD, UNK
     Route: 065
  10. INSTILLAGEL (CHLORHEXIDINE GLUCONATE, LIDOCAINE HYDROCHLORIDE) 2% [Suspect]
     Dosage: 11 ML, QD, UNK
     Route: 065
  11. CLOTRIMAZOLE (CLOTRIMAZOLE) 1% [Suspect]
     Dosage: 1% BID - TID, TOPICAL
     Route: 061
  12. DERMALO HYDROBASE (PARAFFINS/ISOPROPYL MYRISTATE) [Suspect]
     Dosage: AS NEEDED, TOPICAL
     Route: 061
  13. DOUBLEBASE GEL [Suspect]
     Dosage: UNK, PRN
     Route: 065

REACTIONS (4)
  - CARDIAC FAILURE CONGESTIVE [None]
  - CHRONIC OBSTRUCTIVE PULMONARY DISEASE [None]
  - CYSTITIS [None]
  - DIZZINESS [None]
